FAERS Safety Report 24630397 (Version 1)
Quarter: 2024Q4

REPORT INFORMATION
  Report Type: Other
  Country: JP (occurrence: JP)
  Receive Date: 20241118
  Receipt Date: 20241118
  Transmission Date: 20250115
  Serious: Yes (Hospitalization)
  Sender: ORBION PHARMACEUTICALS PRIVATE LIMITED
  Company Number: JP-OrBion Pharmaceuticals Private Limited-2165245

PATIENT
  Age: 47 Year
  Sex: Female

DRUGS (6)
  1. ESZOPICLONE [Suspect]
     Active Substance: ESZOPICLONE
     Indication: Intentional overdose
  2. LITHIUM [Suspect]
     Active Substance: LITHIUM
  3. CHLORPROMAZINE [Suspect]
     Active Substance: CHLORPROMAZINE
  4. LEVOMEPROMAZINE [Suspect]
     Active Substance: LEVOMEPROMAZINE
  5. BROTIZOLAM [Suspect]
     Active Substance: BROTIZOLAM
  6. ALPRAZOLAM [Suspect]
     Active Substance: ALPRAZOLAM

REACTIONS (5)
  - Renal failure [Unknown]
  - Intentional product misuse [Unknown]
  - Intentional overdose [Unknown]
  - Dehydration [Recovered/Resolved]
  - Hypotension [Recovered/Resolved]
